FAERS Safety Report 9927832 (Version 1)
Quarter: 2014Q1

REPORT INFORMATION
  Report Type: Spontaneous
  Country: GB (occurrence: None)
  Receive Date: 20140220
  Receipt Date: 20140220
  Transmission Date: 20141002
  Serious: Yes (Other)
  Sender: FDA-Public Use
  Company Number: AUR-APL-2014-01544

PATIENT
  Age: 32 Year
  Sex: Male
  Weight: 115 kg

DRUGS (2)
  1. GABAPENTIN [Suspect]
     Indication: PRODUCT USED FOR UNKNOWN INDICATION
     Dates: start: 20140102
  2. RAMIPRIL (RAMIPRIL) [Concomitant]

REACTIONS (3)
  - Lip swelling [None]
  - Vomiting [None]
  - Asthenia [None]
